FAERS Safety Report 10963956 (Version 2)
Quarter: 2015Q2

REPORT INFORMATION
  Report Type: Spontaneous
  Country: US (occurrence: US)
  Receive Date: 20150328
  Receipt Date: 20150524
  Transmission Date: 20150821
  Serious: No
  Sender: FDA-Public Use
  Company Number: US-JNJFOC-20130522072

PATIENT
  Age: 62 Year
  Sex: Male
  Weight: 86.18 kg

DRUGS (3)
  1. DURAGESIC [Suspect]
     Active Substance: FENTANYL
     Indication: BACK PAIN
     Route: 062
     Dates: start: 201303
  2. GABAPENTIN. [Concomitant]
     Active Substance: GABAPENTIN
     Indication: HYPOAESTHESIA
     Route: 048
     Dates: start: 2012
  3. BYSTOLIC [Concomitant]
     Active Substance: NEBIVOLOL HYDROCHLORIDE
     Indication: BLOOD PRESSURE
     Route: 048
     Dates: start: 2010

REACTIONS (4)
  - Product quality issue [Unknown]
  - Product quality issue [Not Recovered/Not Resolved]
  - Claustrophobia [Recovered/Resolved]
  - Product quality issue [Unknown]

NARRATIVE: CASE EVENT DATE: 201303
